FAERS Safety Report 10272374 (Version 1)
Quarter: 2014Q1

REPORT INFORMATION
  Report Type: Spontaneous
  Country: US (occurrence: None)
  Receive Date: 20140306
  Receipt Date: 20140306
  Transmission Date: 20141002
  Serious: Yes (Other)
  Sender: FDA-Public Use
  Company Number: 163-21880-13044663

PATIENT
  Age: 70 Year
  Sex: Male

DRUGS (2)
  1. REVLIMID (LENALIDOMIDE) (10 MILLIGRAM, CAPSULES) [Suspect]
     Indication: PLASMA CELL MYELOMA
     Dosage: 10 MG, 21 IN 28ND, PO 03/09/2013 - 04/29/2013 THERAPY DATES
     Route: 048
     Dates: start: 20130309, end: 20130429
  2. ZOMETA (ZOLEDRONIC ACID) [Concomitant]

REACTIONS (2)
  - Muscle spasms [None]
  - Peripheral coldness [None]
